FAERS Safety Report 4714720-2 (Version None)
Quarter: 2005Q3

REPORT INFORMATION
  Report Type: 
  Country: None (occurrence: None)
  Receive Date: 20050715
  Receipt Date: 20050707
  Transmission Date: 20060218
  Serious: Yes (Other)
  Sender: FDA-Public Use
  Company Number: DE-BRISTOL-MYERS SQUIBB COMPANY-13030218

PATIENT
  Age: 37 Year
  Sex: Male

DRUGS (7)
  1. STAVUDINE [Suspect]
  2. DIDANOSINE [Suspect]
  3. EFAVIRENZ [Suspect]
  4. LAMIVUDINE [Suspect]
  5. RITONAVIR [Suspect]
  6. INTERFERON ALFA [Concomitant]
  7. ZIDOVUDINE [Suspect]

REACTIONS (4)
  - ALANINE AMINOTRANSFERASE INCREASED [None]
  - HEPATITIS B [None]
  - HEPATOSPLENOMEGALY [None]
  - NEUTROPENIA [None]
